FAERS Safety Report 20296283 (Version 1)
Quarter: 2022Q1

REPORT INFORMATION
  Report Type: Spontaneous
  Country: DE (occurrence: DE)
  Receive Date: 20220105
  Receipt Date: 20220105
  Transmission Date: 20220423
  Serious: Yes (Hospitalization, Other)
  Sender: FDA-Public Use
  Company Number: DE-ADRED-07541-01

PATIENT
  Age: 65 Year
  Sex: Male
  Weight: 72 kg

DRUGS (2)
  1. ATORVASTATIN [Suspect]
     Active Substance: ATORVASTATIN
     Indication: Product used for unknown indication
     Dosage: 20 MG, 0-0-0-1, TABLETS, UNK
     Route: 048
  2. JANUMET [Suspect]
     Active Substance: METFORMIN HYDROCHLORIDE\SITAGLIPTIN PHOSPHATE
     Indication: Product used for unknown indication
     Dosage: 850 | 50 MG, 0-1-0-0, TABLETS, UNK
     Route: 048

REACTIONS (6)
  - Urinary retention [Unknown]
  - Pollakiuria [Unknown]
  - Dysuria [Unknown]
  - Acute kidney injury [Unknown]
  - Nocturia [Unknown]
  - Renal impairment [Unknown]
